FAERS Safety Report 6704548 (Version 2)
Quarter: 2020Q3

REPORT INFORMATION
  Report Type: Report from Study
  Country: US (occurrence: US)
  Receive Date: 20080721
  Receipt Date: 20080808
  Transmission Date: 20201105
  Serious: Yes (Hospitalization, Other)
  Sender: FDA-Public Use
  Company Number: US-ROCHE-575083

PATIENT
  Age: 79 Year
  Sex: Female
  Weight: 66.7 kg

DRUGS (12)
  1. LANOXIN [Concomitant]
     Active Substance: DIGOXIN
  2. COUMADIN [Concomitant]
     Active Substance: WARFARIN SODIUM
  3. IBANDRONIC ACID. [Suspect]
     Active Substance: IBANDRONIC ACID
     Indication: OSTEOPOROSIS
     Route: 042
     Dates: start: 2006
  4. BUMEX [Concomitant]
     Active Substance: BUMETANIDE
  5. CALTRATE WITH VITAMIN D [Concomitant]
     Active Substance: CALCIUM CARBONATE\CHOLECALCIFEROL
     Dosage: DRUG REPORTED AS: CALTRATE WITH D
  6. GLYCOCYAMINE [Concomitant]
     Active Substance: GLYCOCYAMINE
     Dosage: DRUG REPORTED AS: GLYCOSOMINE
  7. MIRALAX [Concomitant]
     Active Substance: POLYETHYLENE GLYCOL 3350
  8. POTASSIUM CHLORIDE. [Concomitant]
     Active Substance: POTASSIUM CHLORIDE
  9. NITROGLYCERIN. [Concomitant]
     Active Substance: NITROGLYCERIN
  10. AMIODARONE [Concomitant]
     Active Substance: AMIODARONE
  11. VASOTEC [Concomitant]
     Active Substance: ENALAPRIL MALEATE
  12. LORTAB [Concomitant]
     Active Substance: ACETAMINOPHEN\HYDROCODONE BITARTRATE

REACTIONS (2)
  - Myocardial infarction [Unknown]
  - Thoracic vertebral fracture [Unknown]

NARRATIVE: CASE EVENT DATE: 20080614
